FAERS Safety Report 19250675 (Version 1)
Quarter: 2021Q2

REPORT INFORMATION
  Report Type: Spontaneous
  Country: CH (occurrence: CH)
  Receive Date: 20210513
  Receipt Date: 20210513
  Transmission Date: 20210717
  Serious: Yes (Other)
  Sender: FDA-Public Use
  Company Number: CH-ASTRAZENECA-2021A392757

PATIENT
  Age: 30271 Day
  Sex: Female
  Weight: 42 kg

DRUGS (13)
  1. CONDROSULF [Concomitant]
     Active Substance: SODIUM CHONDROITIN SULFATE
     Dosage: AS NECESSARY
     Route: 048
  2. CALCIMAGON D3 [Concomitant]
     Active Substance: CALCIUM\CHOLECALCIFEROL
     Route: 048
  3. XELODA [Suspect]
     Active Substance: CAPECITABINE
     Indication: BREAST CANCER METASTATIC
     Route: 048
     Dates: start: 20210330
  4. ASPIRIN CARDIO [Concomitant]
     Active Substance: ASPIRIN
     Dosage: LONG TERM
     Route: 048
  5. IBRANCE [Suspect]
     Active Substance: PALBOCICLIB
     Indication: BREAST CANCER METASTATIC
     Route: 048
     Dates: start: 20200504
  6. IBRANCE [Suspect]
     Active Substance: PALBOCICLIB
     Indication: BREAST CANCER METASTATIC
     Dosage: DATES EXACTES DE DEBUT ET FIN DU TRAITEMENT A CETTE DOSE NON CONNUES (ENTRE 2020 ET 2021)
     Route: 048
     Dates: end: 20210308
  7. ZALDIAR [Concomitant]
     Active Substance: ACETAMINOPHEN\TRAMADOL HYDROCHLORIDE
     Route: 048
  8. FASLODEX [Suspect]
     Active Substance: FULVESTRANT
     Indication: BREAST CANCER METASTATIC
     Dosage: DOSAGE NON SPECIFIC
     Route: 030
     Dates: start: 20200204, end: 20210308
  9. ALDACTONE [Concomitant]
     Active Substance: SPIRONOLACTONE
     Dosage: LONG TERM
     Route: 048
  10. DICETEL [Concomitant]
     Active Substance: PINAVERIUM BROMIDE
     Route: 048
  11. XELODA [Suspect]
     Active Substance: CAPECITABINE
     Indication: BREAST CANCER METASTATIC
     Route: 048
     Dates: start: 20210319, end: 20210324
  12. ALENDRON MEPHA [Concomitant]
     Active Substance: ALENDRONATE SODIUM
     Dosage: LONG TERM
     Route: 048
  13. VOLTAREN DOLO FORTE [Concomitant]
     Route: 048

REACTIONS (1)
  - Colitis [Recovered/Resolved]

NARRATIVE: CASE EVENT DATE: 20210317
